FAERS Safety Report 24717106 (Version 1)
Quarter: 2024Q4

REPORT INFORMATION
  Report Type: Spontaneous
  Country: CN (occurrence: CN)
  Receive Date: 20241210
  Receipt Date: 20241210
  Transmission Date: 20250115
  Serious: Yes (Other)
  Sender: B BRAUN
  Company Number: CN-B.Braun Medical Inc.-2166823

PATIENT
  Age: 54 Year
  Sex: Male

DRUGS (2)
  1. NUTRILIPID I.V. FAT EMULSION [Suspect]
     Active Substance: SOYBEAN OIL
     Indication: Nutritional supplementation
  2. VITAMINS [Suspect]
     Active Substance: VITAMINS

REACTIONS (3)
  - Erythema [Recovering/Resolving]
  - Loss of consciousness [Recovering/Resolving]
  - Pulse abnormal [Recovering/Resolving]
